FAERS Safety Report 14604987 (Version 1)
Quarter: 2018Q1

REPORT INFORMATION
  Report Type: Spontaneous
  Country: US (occurrence: US)
  Receive Date: 20180306
  Receipt Date: 20180306
  Transmission Date: 20180509
  Serious: Yes (Hospitalization, Other)
  Sender: FDA-Public Use
  Company Number: US-SHIRE-US201807793

PATIENT
  Sex: Female
  Weight: 48.2 kg

DRUGS (1)
  1. GATTEX [Suspect]
     Active Substance: TEDUGLUTIDE\WATER
     Indication: SHORT-BOWEL SYNDROME
     Dosage: 2.41 MG/KG, UNK
     Route: 065

REACTIONS (4)
  - Drug ineffective [Unknown]
  - Renal failure [Unknown]
  - Fall [Unknown]
  - Weight decreased [Unknown]
